FAERS Safety Report 8046297-0 (Version None)
Quarter: 2012Q1

REPORT INFORMATION
  Report Type: 
  Country: None (occurrence: None)
  Receive Date: 20120113
  Receipt Date: 20120106
  Transmission Date: 20120608
  Serious: No
  Sender: FDA-Public Use
  Company Number: US-PFIZER INC-2012004930

PATIENT
  Sex: Female
  Weight: 59.9 kg

DRUGS (4)
  1. LIPITOR [Suspect]
     Indication: BLOOD CHOLESTEROL INCREASED
     Dosage: 20 MG, 1X/DAY
     Route: 048
     Dates: start: 20110901
  2. LIPITOR [Suspect]
     Dosage: 10 MG, UNK
     Route: 048
     Dates: start: 20110901
  3. LISINOPRIL [Concomitant]
     Indication: HYPERTENSION
     Dosage: 10 MG, UNK
  4. LEVOTHYROXINE [Concomitant]
     Indication: HYPOTHYROIDISM
     Dosage: UNK

REACTIONS (3)
  - BLOOD CHOLESTEROL ABNORMAL [None]
  - LIPIDS INCREASED [None]
  - LOW DENSITY LIPOPROTEIN INCREASED [None]
